FAERS Safety Report 6949304-9 (Version None)
Quarter: 2010Q3

REPORT INFORMATION
  Report Type: 
  Country: None (occurrence: None)
  Receive Date: 20100828
  Receipt Date: 20100113
  Transmission Date: 20110219
  Serious: No
  Sender: FDA-Public Use
  Company Number: US-ABBOTT-09P-163-0615159-00

PATIENT
  Age: 74 Year
  Sex: Female

DRUGS (8)
  1. NIASPAN [Suspect]
     Indication: DYSLIPIDAEMIA
     Route: 048
     Dates: start: 20091211, end: 20091213
  2. ASPIRIN [Concomitant]
     Indication: FLUSHING
     Route: 048
     Dates: start: 20091211
  3. ASPIRIN [Concomitant]
     Indication: PROPHYLAXIS
  4. LIPITOR [Concomitant]
     Indication: BLOOD CHOLESTEROL
     Route: 048
  5. FLAXSEED OIL [Concomitant]
     Indication: SUPPLEMENTATION THERAPY
     Route: 048
  6. LISINOPRIL AND HYDROCHLOROTHIAZIDE [Concomitant]
     Indication: HYPERTENSION
     Dosage: 20/25  1.5 TABLETS DAILY
     Route: 048
  7. METOPROLOL [Concomitant]
     Indication: BLOOD PRESSURE
     Dosage: UNSURE OF STRENGTH 1/2 BID
     Route: 048
  8. CHONDROITIN W/GLUCOSAMINE [Concomitant]
     Indication: SUPPLEMENTATION THERAPY
     Route: 048

REACTIONS (2)
  - FLUSHING [None]
  - PRURITUS [None]
